FAERS Safety Report 18260020 (Version 1)
Quarter: 2020Q3

REPORT INFORMATION
  Report Type: Spontaneous
  Country: IT (occurrence: IT)
  Receive Date: 20200913
  Receipt Date: 20200913
  Transmission Date: 20201103
  Serious: Yes (Hospitalization, Other)
  Sender: FDA-Public Use
  Company Number: IT-LUPIN PHARMACEUTICALS INC.-2020-05770

PATIENT
  Age: 70 Year
  Sex: Male

DRUGS (25)
  1. AZITHROMYCIN ANHYDROUS. [Suspect]
     Active Substance: AZITHROMYCIN ANHYDROUS
     Indication: COVID-19
     Dosage: 500 MILLIGRAM, QD
     Route: 065
  2. CEFTRIAXONE. [Suspect]
     Active Substance: CEFTRIAXONE
     Indication: STAPHYLOCOCCAL INFECTION
  3. MEROPENEM. [Suspect]
     Active Substance: MEROPENEM
     Indication: STAPHYLOCOCCAL INFECTION
  4. CEFTRIAXONE. [Suspect]
     Active Substance: CEFTRIAXONE
     Indication: BACTERAEMIA
  5. VITAMIN C ACID [Suspect]
     Active Substance: ASCORBIC ACID
     Indication: SEPSIS
     Dosage: 50 MILLIGRAM/KILOGRAM, QID
     Route: 042
  6. COBICISTAT;DARUNAVIR [Suspect]
     Active Substance: COBICISTAT\DARUNAVIR ETHANOLATE
     Indication: COVID-19
     Dosage: 150/800 MILLIGRAM, QD
     Route: 065
  7. DAPTOMYCIN. [Suspect]
     Active Substance: DAPTOMYCIN
     Indication: PNEUMONIA
     Dosage: UNK
     Route: 065
  8. METFORMIN [Concomitant]
     Active Substance: METFORMIN HYDROCHLORIDE
     Indication: TYPE 2 DIABETES MELLITUS
     Route: 065
  9. LINEZOLID. [Suspect]
     Active Substance: LINEZOLID
     Indication: PNEUMONIA
     Dosage: UNK
     Route: 065
  10. LOPINAVIR/RITONAVIR [Suspect]
     Active Substance: LOPINAVIR\RITONAVIR
     Indication: COVID-19
     Dosage: 400 MILLIGRAM, BID
     Route: 065
  11. MEROPENEM. [Suspect]
     Active Substance: MEROPENEM
     Indication: PNEUMONIA
     Dosage: UNK
     Route: 065
  12. HYDROXYCHLOROQUINE [Suspect]
     Active Substance: HYDROXYCHLOROQUINE
     Indication: COVID-19
     Dosage: 400 MILLIGRAM, BID
     Route: 065
  13. PIPERACILLIN/TAZOBACTAM [Suspect]
     Active Substance: PIPERACILLIN SODIUM\TAZOBACTAM SODIUM
     Indication: STAPHYLOCOCCAL INFECTION
  14. PIPERACILLIN/TAZOBACTAM [Suspect]
     Active Substance: PIPERACILLIN SODIUM\TAZOBACTAM SODIUM
     Indication: BACTERAEMIA
  15. OXACILLIN [Suspect]
     Active Substance: OXACILLIN SODIUM
     Indication: BACTERAEMIA
  16. LINEZOLID. [Suspect]
     Active Substance: LINEZOLID
     Indication: STAPHYLOCOCCAL INFECTION
  17. OXACILLIN [Suspect]
     Active Substance: OXACILLIN SODIUM
     Indication: PNEUMONIA
     Dosage: UNK
     Route: 065
  18. LINEZOLID. [Suspect]
     Active Substance: LINEZOLID
     Indication: BACTERAEMIA
  19. DAPTOMYCIN. [Suspect]
     Active Substance: DAPTOMYCIN
     Indication: STAPHYLOCOCCAL INFECTION
  20. DAPTOMYCIN. [Suspect]
     Active Substance: DAPTOMYCIN
     Indication: BACTERAEMIA
  21. OXACILLIN [Suspect]
     Active Substance: OXACILLIN SODIUM
     Indication: STAPHYLOCOCCAL INFECTION
  22. CEFTRIAXONE. [Suspect]
     Active Substance: CEFTRIAXONE
     Indication: PNEUMONIA
     Dosage: UNK
     Route: 065
  23. PIPERACILLIN/TAZOBACTAM [Suspect]
     Active Substance: PIPERACILLIN SODIUM\TAZOBACTAM SODIUM
     Indication: PNEUMONIA
     Dosage: UNK
     Route: 065
  24. MEROPENEM. [Suspect]
     Active Substance: MEROPENEM
     Indication: BACTERAEMIA
  25. INSULIN [Concomitant]
     Active Substance: INSULIN NOS
     Indication: TYPE 2 DIABETES MELLITUS
     Dosage: UNK (LONG?ACTING)
     Route: 065

REACTIONS (8)
  - Renal impairment [Recovering/Resolving]
  - Renal tubular injury [Recovering/Resolving]
  - Anuria [Recovered/Resolved]
  - Drug effective for unapproved indication [Unknown]
  - Platelet count decreased [Unknown]
  - Crystal nephropathy [Recovering/Resolving]
  - Off label use [Unknown]
  - Hyperoxaluria [Recovering/Resolving]
